FAERS Safety Report 21199017 (Version 1)
Quarter: 2022Q3

REPORT INFORMATION
  Report Type: Report from Study
  Country: CA (occurrence: CA)
  Receive Date: 20220811
  Receipt Date: 20220811
  Transmission Date: 20221027
  Serious: Yes (Hospitalization)
  Sender: FDA-Public Use
  Company Number: CA-TAKEDA-2022TUS054518

PATIENT
  Age: 76 Year
  Sex: Male

DRUGS (19)
  1. VEDOLIZUMAB [Suspect]
     Active Substance: VEDOLIZUMAB
     Indication: Crohn^s disease
     Dosage: 300 MILLIGRAM
     Route: 042
     Dates: start: 20220429
  2. IRON [Concomitant]
     Active Substance: IRON
     Indication: Supplementation therapy
     Dosage: UNK
  3. ASPIRIN [Concomitant]
     Active Substance: ASPIRIN
     Dosage: UNK
  4. VITAMIN C [Concomitant]
     Active Substance: ASCORBIC ACID
     Dosage: UNK
  5. BISOPROLOL [Concomitant]
     Active Substance: BISOPROLOL
     Indication: Cardiac disorder
     Dosage: 5 MILLIGRAM, QD
  6. SPIRIVA [Concomitant]
     Active Substance: TIOTROPIUM BROMIDE MONOHYDRATE
     Indication: Lung disorder
     Dosage: UNK
     Route: 050
  7. TAMSULOSIN [Concomitant]
     Active Substance: TAMSULOSIN
     Dosage: 0.4 MILLIGRAM, QD
  8. METFORMIN [Concomitant]
     Active Substance: METFORMIN HYDROCHLORIDE
     Dosage: 500 MILLIGRAM, QD
  9. EZETIMIBE [Concomitant]
     Active Substance: EZETIMIBE
     Dosage: 10 MILLIGRAM, QD
  10. Salofalk [Concomitant]
     Dosage: 500 MILLIGRAM, QID
  11. ROSUVASTATIN [Concomitant]
     Active Substance: ROSUVASTATIN
     Indication: Blood cholesterol increased
     Dosage: 20 MILLIGRAM, QD
  12. SYNTHROID [Concomitant]
     Active Substance: LEVOTHYROXINE SODIUM
     Indication: Thyroid disorder
     Dosage: 25 MILLIGRAM
  13. PREGABALIN [Concomitant]
     Active Substance: PREGABALIN
     Dosage: 50 MILLIGRAM
  14. BRIMONIDINE [Concomitant]
     Active Substance: BRIMONIDINE TARTRATE
     Indication: Glaucoma
     Dosage: UNK
     Route: 047
  15. VYZULTA [Concomitant]
     Active Substance: LATANOPROSTENE BUNOD
     Dosage: UNK
  16. ALBUTEROL [Concomitant]
     Active Substance: ALBUTEROL
     Indication: Lung disorder
     Dosage: UNK
  17. TRESIBA [Concomitant]
     Active Substance: INSULIN DEGLUDEC
     Dosage: UNK
  18. HUMALOG [Concomitant]
     Active Substance: INSULIN LISPRO
     Dosage: UNK
  19. JARDIANCE [Concomitant]
     Active Substance: EMPAGLIFLOZIN
     Indication: Type 1 diabetes mellitus
     Dosage: UNK

REACTIONS (1)
  - Blood potassium increased [Unknown]
